FAERS Safety Report 16196423 (Version 1)
Quarter: 2019Q2

REPORT INFORMATION
  Report Type: Spontaneous
  Country: DE (occurrence: DE)
  Receive Date: 20190415
  Receipt Date: 20190415
  Transmission Date: 20190711
  Serious: Yes (Other)
  Sender: FDA-Public Use
  Company Number: DE-UNICHEM PHARMACEUTICALS (USA) INC-UCM201904-000127

PATIENT
  Age: 41 Year
  Sex: Male

DRUGS (14)
  1. QUETIAPINE. [Suspect]
     Active Substance: QUETIAPINE
     Indication: DEPRESSION
  2. ATROPINE. [Concomitant]
     Active Substance: ATROPINE
  3. VENLAFAXINE [Concomitant]
     Active Substance: VENLAFAXINE HYDROCHLORIDE
     Indication: DEPRESSION
  4. TRANYLCYPROMINE [Concomitant]
     Active Substance: TRANYLCYPROMINE
  5. AMITRIPTYLINE [Suspect]
     Active Substance: AMITRIPTYLINE
     Indication: DEPRESSION
  6. METHOHEXITAL [Concomitant]
     Active Substance: METHOHEXITAL
     Indication: ANAESTHESIA
     Dosage: 150 MG (1.5-2 MG/KG BODY WEIGHT)
     Route: 042
  7. MIVACURIUM [Concomitant]
     Active Substance: MIVACURIUM
     Indication: MUSCLE RELAXANT THERAPY
     Dosage: 20 MG (0.25 MG/KG BODY WEIGHT)
  8. KETAMINE [Concomitant]
     Active Substance: KETAMINE
     Dosage: 0.5 MG/KG BODY WEIGHT ADMINISTERED INTRAVENOUSLY DURING 40 MIN EVERY SECOND DAY
     Route: 042
  9. ATROPINE. [Concomitant]
     Active Substance: ATROPINE
  10. SUXAMETHONIUM [Concomitant]
     Active Substance: SUCCINYLCHOLINE
     Indication: MUSCLE RELAXANT THERAPY
     Dosage: 80 MG (1 MG/KG BODY WEIGHT)
  11. MIRTAZAPINE. [Concomitant]
     Active Substance: MIRTAZAPINE
     Indication: DEPRESSION
     Dosage: MAX. 45 MG
  12. LITHIUM. [Suspect]
     Active Substance: LITHIUM
     Indication: DEPRESSION
  13. RISPERIDONE. [Concomitant]
     Active Substance: RISPERIDONE
     Indication: DEPRESSION
  14. VENLAFAXINE [Concomitant]
     Active Substance: VENLAFAXINE HYDROCHLORIDE
     Dosage: MAX. 225 MG

REACTIONS (1)
  - Brugada syndrome [Recovered/Resolved]
